FAERS Safety Report 6666522-8 (Version None)
Quarter: 2010Q2

REPORT INFORMATION
  Report Type: 
  Country: None (occurrence: None)
  Receive Date: 20100402
  Receipt Date: 20100325
  Transmission Date: 20101027
  Serious: Yes (Hospitalization)
  Sender: FDA-Public Use
  Company Number: US-ABBOTT-10P-163-0628411-00

PATIENT
  Sex: Male
  Weight: 88.53 kg

DRUGS (5)
  1. NIASPAN [Suspect]
     Indication: HIGH DENSITY LIPOPROTEIN DECREASED
     Dosage: AT BEDTIME
     Dates: start: 20100101, end: 20100301
  2. NIASPAN [Suspect]
     Route: 048
  3. EXFORGE [Concomitant]
     Indication: DRUG USE FOR UNKNOWN INDICATION
     Dosage: 5/160 MG
     Route: 048
  4. CRESTOR [Concomitant]
     Indication: DRUG USE FOR UNKNOWN INDICATION
     Route: 048
  5. ASPIRIN [Concomitant]
     Indication: DRUG USE FOR UNKNOWN INDICATION
     Route: 048

REACTIONS (7)
  - BURNING SENSATION [None]
  - DIZZINESS [None]
  - FLUSHING [None]
  - MYOCARDIAL INFARCTION [None]
  - PRURITUS [None]
  - RASH [None]
  - RASH PAPULAR [None]
